FAERS Safety Report 9174054 (Version 1)
Quarter: 2013Q1

REPORT INFORMATION
  Report Type: Spontaneous
  Country: US (occurrence: US)
  Receive Date: 20130320
  Receipt Date: 20130320
  Transmission Date: 20140127
  Serious: No
  Sender: FDA-Public Use
  Company Number: US-PFIZER INC-2013090066

PATIENT
  Age: 80 Year
  Sex: Female
  Weight: 74.83 kg

DRUGS (4)
  1. ADVIL [Suspect]
     Indication: ARTHRITIS
     Dosage: 400 MG (2 TABLETS), UNK
     Route: 048
     Dates: start: 201208, end: 201208
  2. ADVIL [Suspect]
     Indication: ARTHRALGIA
  3. LORTAB [Concomitant]
     Indication: ARTHRITIS
     Dosage: 1 DF, 3X/DAY (7.5/500MG)
     Route: 048
     Dates: start: 2010
  4. EQUATE ARTHRITIS PAIN ACETAMINOPHEN [Concomitant]
     Indication: ARTHRITIS
     Dosage: 650 MG (1 TABLET), AS NEEDED
     Route: 048
     Dates: start: 201208

REACTIONS (1)
  - Drug ineffective [Recovered/Resolved]
